FAERS Safety Report 20630979 (Version 1)
Quarter: 2022Q1

REPORT INFORMATION
  Report Type: Spontaneous
  Country: US (occurrence: None)
  Receive Date: 20220324
  Receipt Date: 20220324
  Transmission Date: 20220423
  Serious: No
  Sender: FDA-Public Use
  Company Number: US-Merck Healthcare KGaA-9307426

PATIENT
  Sex: Male

DRUGS (1)
  1. SEROSTIM [Suspect]
     Active Substance: SOMATROPIN
     Indication: Cachexia

REACTIONS (3)
  - Transaminases increased [Recovering/Resolving]
  - Hepatic enzyme increased [Recovering/Resolving]
  - Arthralgia [Recovering/Resolving]
